FAERS Safety Report 5417267-3 (Version None)
Quarter: 2007Q3

REPORT INFORMATION
  Report Type: 
  Country: None (occurrence: None)
  Receive Date: 20070816
  Receipt Date: 20070807
  Transmission Date: 20080115
  Serious: Yes (Hospitalization)
  Sender: FDA-Public Use
  Company Number: US-SANOFI-SYNTHELABO-A03200705012

PATIENT
  Age: 51 Year
  Sex: Female

DRUGS (4)
  1. HYDROXYCHLOROQUINE SULFATE [Suspect]
     Indication: JUVENILE ARTHRITIS
     Dosage: 100 - 200 MG TWICE DAILY
     Route: 048
     Dates: start: 19700101, end: 20010101
  2. HYDROXYCHLOROQUINE SULFATE [Suspect]
     Indication: SYSTEMIC LUPUS ERYTHEMATOSUS
     Dosage: 100 - 200 MG TWICE DAILY
     Route: 048
     Dates: start: 19700101, end: 20010101
  3. PREDNISONE TAB [Concomitant]
     Dosage: {10 MG/DAY
     Route: 048
     Dates: start: 19700101
  4. PREDNISONE TAB [Concomitant]
     Dosage: {10 MG/DAY
     Route: 048
     Dates: start: 19700101

REACTIONS (9)
  - CARDIAC FAILURE CONGESTIVE [None]
  - DYSPNOEA EXERTIONAL [None]
  - FATIGUE [None]
  - JUGULAR VEIN DISTENSION [None]
  - OEDEMA PERIPHERAL [None]
  - PLEURAL EFFUSION [None]
  - RESTRICTIVE CARDIOMYOPATHY [None]
  - RETINOPATHY [None]
  - WEIGHT INCREASED [None]
